FAERS Safety Report 8460777 (Version 6)
Quarter: 2013Q1

REPORT INFORMATION
  Report Type: Spontaneous
  Country: US (occurrence: US)
  Receive Date: 20120315
  Receipt Date: 20130328
  Transmission Date: 20140127
  Serious: Yes (Congenital Anomaly, Other)
  Sender: FDA-Public Use
  Company Number: US-PFIZER INC-2012067203

PATIENT
  Sex: Male

DRUGS (13)
  1. ZOLOFT [Suspect]
     Dosage: 200 MG, 1X/DAY
     Route: 064
     Dates: start: 20090115
  2. ZOLOFT [Suspect]
     Dosage: 100 MG, 1X/DAY
     Route: 064
     Dates: start: 20100210
  3. ZOLOFT [Suspect]
     Dosage: UNK
     Route: 064
     Dates: start: 2006
  4. KLONOPIN [Concomitant]
     Dosage: 1 MG, 2X/DAY
     Route: 064
     Dates: start: 20100817
  5. KLONOPIN [Concomitant]
     Dosage: 0.5 MG, 1X/DAY
     Route: 064
     Dates: start: 20110118
  6. SEROQUEL [Concomitant]
     Dosage: 50 MG, UNK
     Route: 064
     Dates: start: 20100817
  7. ZOFRAN [Concomitant]
     Dosage: 4 MG, UNK
     Route: 064
     Dates: start: 20100817
  8. PRENATAL VITAMINS [Concomitant]
     Dosage: UNK
     Route: 064
     Dates: start: 20110118
  9. SERTRALINE HYDROCHLORIDE [Concomitant]
     Dosage: 100 MG, UNK
     Route: 064
     Dates: start: 20090115
  10. OMEPRAZOLE [Concomitant]
     Dosage: 20 MG, UNK
     Route: 064
     Dates: start: 20090219
  11. OMEPRAZOLE [Concomitant]
     Dosage: 40 MG, UNK
     Route: 064
     Dates: start: 20110105
  12. CLONAZEPAM [Concomitant]
     Dosage: 1 MG, UNK
     Route: 064
     Dates: start: 20090115
  13. ONDANSETRON HYDROCHLORIDE [Concomitant]
     Dosage: 4 MG, UNK
     Route: 064
     Dates: start: 20100818

REACTIONS (3)
  - Maternal exposure timing unspecified [Unknown]
  - Congenital oral malformation [Unknown]
  - Congenital anomaly [Unknown]
